FAERS Safety Report 14124759 (Version 1)
Quarter: 2017Q4

REPORT INFORMATION
  Report Type: Spontaneous
  Country: US (occurrence: US)
  Receive Date: 20171025
  Receipt Date: 20171025
  Transmission Date: 20180321
  Serious: No
  Sender: FDA-Public Use
  Company Number: None

PATIENT
  Sex: Female
  Weight: 94.5 kg

DRUGS (7)
  1. LEVOTHYROXINE SODIUM. [Concomitant]
     Active Substance: LEVOTHYROXINE SODIUM
  2. METFORMIN [Concomitant]
     Active Substance: METFORMIN HYDROCHLORIDE
  3. JANUVIA [Suspect]
     Active Substance: SITAGLIPTIN PHOSPHATE
     Dosage: ?          QUANTITY:90 TABLET(S);?
     Route: 048
     Dates: start: 20171001, end: 20171012
  4. LISINOPRIL. [Concomitant]
     Active Substance: LISINOPRIL
  5. FENOFIBRATE. [Concomitant]
     Active Substance: FENOFIBRATE
  6. ASPRIN [Concomitant]
     Active Substance: ASPIRIN
  7. GLIPIZIDE XL [Concomitant]
     Active Substance: GLIPIZIDE

REACTIONS (5)
  - Back pain [None]
  - Trigger finger [None]
  - Loss of personal independence in daily activities [None]
  - Therapy cessation [None]
  - Pain in extremity [None]

NARRATIVE: CASE EVENT DATE: 20171008
